FAERS Safety Report 9498464 (Version 2)
Quarter: 2013Q4

REPORT INFORMATION
  Report Type: Report from Study
  Country: KR (occurrence: KR)
  Receive Date: 20130904
  Receipt Date: 20131105
  Transmission Date: 20140711
  Serious: No
  Sender: FDA-Public Use
  Company Number: PHHY2013KR095198

PATIENT
  Age: 23 Year
  Sex: Female

DRUGS (2)
  1. AMN107 [Suspect]
     Indication: CHRONIC MYELOID LEUKAEMIA
     Dosage: 400 MG, PER DAY
     Route: 048
     Dates: start: 20120725
  2. CITOPCIN [Concomitant]
     Indication: INFECTION
     Dosage: 500 MG, UNK
     Route: 048
     Dates: start: 20130218, end: 20130324

REACTIONS (1)
  - Generalised oedema [Not Recovered/Not Resolved]
